FAERS Safety Report 6785700-0 (Version None)
Quarter: 2010Q2

REPORT INFORMATION
  Report Type: 
  Country: None (occurrence: None)
  Receive Date: 20100622
  Receipt Date: 20100622
  Transmission Date: 20101027
  Serious: Yes (Life-Threatening, Hospitalization, Other)
  Sender: FDA-Public Use
  Company Number: None

PATIENT
  Sex: Male
  Weight: 122.4712 kg

DRUGS (1)
  1. AMIODARONE HCL [Suspect]

REACTIONS (11)
  - ARRHYTHMIA [None]
  - ASTHENIA [None]
  - CONTUSION [None]
  - DYSPNOEA [None]
  - HAEMATURIA [None]
  - HAEMORRHAGE [None]
  - HYPERTHYROIDISM [None]
  - INTERNATIONAL NORMALISED RATIO INCREASED [None]
  - MUSCLE ATROPHY [None]
  - PLEURAL EFFUSION [None]
  - WEIGHT DECREASED [None]
